FAERS Safety Report 23020179 (Version 1)
Quarter: 2023Q4

REPORT INFORMATION
  Report Type: Spontaneous
  Country: KW (occurrence: KW)
  Receive Date: 20231003
  Receipt Date: 20231003
  Transmission Date: 20240109
  Serious: Yes (Hospitalization, Other)
  Sender: FDA-Public Use
  Company Number: KW-MLMSERVICE-20230918-4550674-1

PATIENT
  Age: 37 Year
  Sex: Female

DRUGS (2)
  1. METHOTREXATE [Suspect]
     Active Substance: METHOTREXATE
     Indication: Abortion induced
  2. SALINE [Concomitant]
     Active Substance: SODIUM CHLORIDE

REACTIONS (9)
  - Acute kidney injury [Recovered/Resolved]
  - Skin hyperpigmentation [Recovered/Resolved]
  - Liver injury [Recovered/Resolved]
  - Mucosal inflammation [Recovered/Resolved]
  - Toxicity to various agents [Recovered/Resolved]
  - Pyelonephritis [Recovered/Resolved]
  - Incorrect dose administered [Recovered/Resolved]
  - Pancytopenia [Recovered/Resolved]
  - Petechiae [Recovered/Resolved]
